FAERS Safety Report 25713566 (Version 1)
Quarter: 2025Q3

REPORT INFORMATION
  Report Type: Spontaneous
  Country: EU (occurrence: EU)
  Receive Date: 20250822
  Receipt Date: 20250822
  Transmission Date: 20251020
  Serious: Yes (Other)
  Sender: ACCORD
  Company Number: EU-Accord-500330

PATIENT
  Age: 44 Year
  Sex: Female

DRUGS (6)
  1. MYCOPHENOLATE MOFETIL [Suspect]
     Active Substance: MYCOPHENOLATE MOFETIL
     Indication: Immunosuppressant drug therapy
  2. TACROLIMUS [Suspect]
     Active Substance: TACROLIMUS
     Indication: Immunosuppressant drug therapy
  3. METHYLPREDNISOLONE [Suspect]
     Active Substance: METHYLPREDNISOLONE
     Indication: Immunosuppressant drug therapy
     Dosage: IN THE FIRST THREE MONTHS, THEN TAPERED TO 4 MG/DAY GRADUALLY
  4. METHYLPREDNISOLONE [Suspect]
     Active Substance: METHYLPREDNISOLONE
     Indication: Immunosuppressant drug therapy
     Dosage: IN THE FIRST THREE MONTHS, THEN TAPERED TO 4 MG/DAY GRADUALLY
  5. MYCOPHENOLATE MOFETIL [Suspect]
     Active Substance: MYCOPHENOLATE MOFETIL
     Indication: Immunosuppressant drug therapy
     Dosage: TEMPORARILY REDUCED TO 500 MG BID
  6. MYCOPHENOLATE MOFETIL [Suspect]
     Active Substance: MYCOPHENOLATE MOFETIL
     Indication: Immunosuppressant drug therapy
     Dosage: RESTORED TO 1 G BID

REACTIONS (5)
  - Viruria [Recovered/Resolved]
  - BK virus infection [Recovered/Resolved]
  - Polyomavirus viraemia [Recovered/Resolved]
  - Infection [Recovered/Resolved]
  - Polyomavirus-associated nephropathy [Recovered/Resolved]

NARRATIVE: CASE EVENT DATE: 20200801
